FAERS Safety Report 8815706 (Version 3)
Quarter: 2012Q4

REPORT INFORMATION
  Report Type: 
  Country: US (occurrence: US)
  Receive Date: 20120928
  Receipt Date: 20121129
  Transmission Date: 20130627
  Serious: Yes (Other)
  Sender: FDA-Public Use
  Company Number: US-PERRIGO-12US007090

PATIENT
  Age: 51 None
  Sex: Male
  Weight: 95.24 kg

DRUGS (4)
  1. NAPROXEN SODIUM [Suspect]
     Indication: RHEUMATOID ARTHRITIS
     Dosage: 220 mg, single
     Route: 048
     Dates: start: 20120810, end: 20120810
  2. CRESTOR [Concomitant]
     Indication: BLOOD CHOLESTEROL INCREASED
     Dosage: UNK, UNK
     Route: 048
  3. LORTAB [Concomitant]
     Indication: RHEUMATOID ARTHRITIS
     Dosage: UNK, UNK
     Route: 048
  4. PRILOSEC [Concomitant]
     Indication: PRODUCT USED FOR UNKNOWN INDICATION
     Route: 048

REACTIONS (21)
  - Hypersensitivity [Recovered/Resolved]
  - Pharyngeal oedema [Recovered/Resolved]
  - Loss of consciousness [Recovered/Resolved]
  - Hypotension [Recovered/Resolved]
  - Disorientation [Recovered/Resolved]
  - Oxygen saturation decreased [Recovered/Resolved]
  - Generalised oedema [Recovering/Resolving]
  - Heart rate increased [Recovered/Resolved]
  - Rash macular [Recovering/Resolving]
  - Stridor [Recovered/Resolved]
  - Feeling hot [Recovered/Resolved]
  - Pruritus [Recovering/Resolving]
  - Urticaria [Recovered/Resolved]
  - Erythema [Recovering/Resolving]
  - Blister [Recovered/Resolved]
  - Dizziness [Recovered/Resolved]
  - Dyspnoea [Recovered/Resolved]
  - Fall [Recovered/Resolved]
  - Scar [Unknown]
  - Skin burning sensation [Recovered/Resolved]
  - Emotional distress [Unknown]
